FAERS Safety Report 7691822-2 (Version None)
Quarter: 2011Q3

REPORT INFORMATION
  Report Type: 
  Country: None (occurrence: None)
  Receive Date: 20110818
  Receipt Date: 20110816
  Transmission Date: 20111222
  Serious: Yes (Death, Other)
  Sender: FDA-Public Use
  Company Number: US-PFIZER INC-2011131338

PATIENT
  Sex: Male

DRUGS (2)
  1. VALPROIC ACID [Concomitant]
     Indication: EPILEPSY
     Dosage: 500 MG, 2X/DAY
     Dates: start: 20110128, end: 20110607
  2. DILANTIN-125 [Suspect]
     Indication: EPILEPSY
     Dosage: 100 MG, 3X/DAY
     Route: 048
     Dates: start: 20090701

REACTIONS (2)
  - DEATH [None]
  - CONVULSION [None]
